FAERS Safety Report 7119145-0 (Version None)
Quarter: 2010Q4

REPORT INFORMATION
  Report Type: 
  Country: None (occurrence: None)
  Receive Date: 20101123
  Receipt Date: 20100827
  Transmission Date: 20110411
  Serious: Yes (Hospitalization)
  Sender: FDA-Public Use
  Company Number: -MYLANLABS-2010S1013234

PATIENT
  Age: 77 Year
  Sex: Male
  Weight: 100.7 kg

DRUGS (11)
  1. BLINDED STUDY MEDICATION [Suspect]
     Indication: HYPERTENSION
     Route: 048
     Dates: start: 20091119, end: 20100602
  2. AMLODIPINE [Suspect]
     Indication: HYPERTENSION
     Route: 048
     Dates: start: 20100128, end: 20100602
  3. BUPROPION [Concomitant]
     Indication: DEPRESSION
     Route: 048
     Dates: start: 20060101
  4. GLYBURIDE [Concomitant]
     Indication: TYPE 2 DIABETES MELLITUS
     Route: 048
     Dates: start: 20060101
  5. HUMALOG [Concomitant]
     Indication: TYPE 2 DIABETES MELLITUS
     Dosage: 75/25
     Route: 030
     Dates: start: 20070101
  6. KLOR-CON [Concomitant]
     Indication: HYPOKALAEMIA
     Route: 048
     Dates: start: 20060101
  7. LISINOPRIL [Concomitant]
     Dates: start: 20060101
  8. METFORMIN HCL [Concomitant]
     Dosage: TWO QD
     Dates: start: 20060101
  9. SIMVASTATIN [Concomitant]
     Dates: start: 20090401
  10. CENTRUM SILVER [Concomitant]
     Dates: start: 20060101
  11. TRAMADOL HCL [Concomitant]
     Dates: start: 20080101

REACTIONS (4)
  - ATRIAL FIBRILLATION [None]
  - CARDIOMEGALY [None]
  - ELECTROCARDIOGRAM T WAVE ABNORMAL [None]
  - SUPRAVENTRICULAR EXTRASYSTOLES [None]
